FAERS Safety Report 24237751 (Version 1)
Quarter: 2024Q3

REPORT INFORMATION
  Report Type: Spontaneous
  Country: US (occurrence: None)
  Receive Date: 20240821
  Receipt Date: 20240821
  Transmission Date: 20241017
  Serious: Yes (Hospitalization)
  Sender: Public
  Company Number: None

PATIENT
  Sex: Female

DRUGS (2)
  1. CAPECITABINE [Suspect]
     Active Substance: CAPECITABINE
     Indication: Breast cancer female
     Dosage: FREQUENCY: TAKE 3 TABLETS BY MOUTH 2 TIMES A DAY ON DAYS 1-14 OF A 21DAY CYCLE.?
     Route: 048
     Dates: start: 202404
  2. CABOMETYX [Suspect]
     Active Substance: CABOZANTINIB S-MALATE

REACTIONS (2)
  - Hospitalisation [None]
  - Weight abnormal [None]
